FAERS Safety Report 21336755 (Version 1)
Quarter: 2022Q3

REPORT INFORMATION
  Report Type: Spontaneous
  Country: US (occurrence: US)
  Receive Date: 20220915
  Receipt Date: 20220915
  Transmission Date: 20221027
  Serious: No
  Sender: FDA-Public Use
  Company Number: US-GLAXOSMITHKLINE-USCH2022033011

PATIENT
  Sex: Female

DRUGS (1)
  1. VOLTAREN ARTHRITIS PAIN [Suspect]
     Active Substance: DICLOFENAC SODIUM
     Indication: Arthritis
     Dosage: UNK

REACTIONS (3)
  - Drug effective for unapproved indication [Recovering/Resolving]
  - Product use in unapproved indication [Recovering/Resolving]
  - Product administered at inappropriate site [Recovering/Resolving]
